FAERS Safety Report 24958296 (Version 2)
Quarter: 2025Q1

REPORT INFORMATION
  Report Type: Spontaneous
  Country: GT (occurrence: GT)
  Receive Date: 20250212
  Receipt Date: 20250317
  Transmission Date: 20250409
  Serious: Yes (Other)
  Sender: JOHNSON AND JOHNSON
  Company Number: GT-JNJFOC-20250193013

PATIENT
  Sex: Female

DRUGS (2)
  1. TREMFYA [Suspect]
     Active Substance: GUSELKUMAB
     Indication: Psoriatic arthropathy
     Dosage: 100MG  WEEK  0,  100MG  WEEK4,  100MG  EVERY  8 WEEKS FOR AN INDEFINITE PERIOD
     Route: 058
     Dates: start: 20241125
  2. TREMFYA [Suspect]
     Active Substance: GUSELKUMAB
     Indication: Psoriasis
     Route: 058

REACTIONS (5)
  - Psoriatic arthropathy [Not Recovered/Not Resolved]
  - Appendicectomy [Unknown]
  - Inappropriate schedule of product administration [Unknown]
  - Drug ineffective [Unknown]
  - Product counterfeit [Unknown]

NARRATIVE: CASE EVENT DATE: 20241220
